FAERS Safety Report 5897612-5 (Version None)
Quarter: 2008Q3

REPORT INFORMATION
  Report Type: 
  Country: None (occurrence: None)
  Receive Date: 20080925
  Receipt Date: 20080916
  Transmission Date: 20090109
  Serious: Yes (Other)
  Sender: FDA-Public Use
  Company Number: US-TYCO HEALTHCARE/MALLINCKRODT-T200801235

PATIENT

DRUGS (23)
  1. OPTIMARK [Suspect]
     Indication: NUCLEAR MAGNETIC RESONANCE IMAGING
     Dosage: UNK, SINGLE
     Dates: start: 20020924, end: 20020924
  2. GADOLINIUM [Suspect]
     Indication: NUCLEAR MAGNETIC RESONANCE IMAGING
     Dosage: UNK, SINGLE
     Dates: start: 20041014, end: 20041014
  3. PLAVIX [Concomitant]
     Indication: ANTICOAGULANT THERAPY
     Dosage: 75 MG, QD
  4. SENSIPAR [Concomitant]
     Indication: BLOOD PARATHYROID HORMONE
     Dosage: 90 MG, QD
  5. LEVOXYL [Concomitant]
     Indication: HYPOTHYROIDISM
     Dosage: .05 MG, QD
  6. COUMADIN [Concomitant]
     Indication: ANTICOAGULANT THERAPY
     Dosage: 4 MG, QD
     Dates: start: 20020401
  7. EPOGEN [Concomitant]
     Indication: RED BLOOD CELL COUNT DECREASED
     Dates: start: 19940601
  8. PROCRIT [Concomitant]
     Indication: ANAEMIA
     Dates: start: 19940601
  9. ACTONEL [Concomitant]
     Indication: OSTEOPOROSIS
  10. ALLOPURINOL [Concomitant]
     Indication: NEPHROLITHIASIS
     Dates: start: 20020101
  11. RENAGEL                            /01459901/ [Concomitant]
     Indication: RENAL DISORDER
     Dates: start: 19970101
  12. ACIPHEX [Concomitant]
     Indication: GASTROOESOPHAGEAL REFLUX DISEASE
  13. PREVACID [Concomitant]
     Indication: ANTACID THERAPY
     Dates: start: 19950101
  14. NORVASC [Concomitant]
     Indication: HYPERTENSION
     Dates: start: 19950101
  15. PREMPRO [Concomitant]
     Indication: OESTROGEN REPLACEMENT THERAPY
  16. COVERA-HS [Concomitant]
     Indication: HYPERTENSION
  17. MAVIK [Concomitant]
     Indication: HYPERTENSION
  18. PROCARDIA [Concomitant]
     Indication: ANGINA PECTORIS
  19. NIFEDIPINE [Concomitant]
     Indication: ANGINA PECTORIS
  20. CALCIUM CARBONATE [Concomitant]
     Indication: DYSPEPSIA
  21. MINOXIDIL [Concomitant]
     Indication: HYPERTENSION
  22. ALLEGRA [Concomitant]
     Indication: MULTIPLE ALLERGIES
     Dates: start: 20020101
  23. PROCELL [Concomitant]

REACTIONS (1)
  - NEPHROGENIC SYSTEMIC FIBROSIS [None]
